FAERS Safety Report 7622479-4 (Version None)
Quarter: 2011Q3

REPORT INFORMATION
  Report Type: 
  Country: None (occurrence: None)
  Receive Date: 20110711
  Receipt Date: 20110628
  Transmission Date: 20111222
  Serious: Yes (Life-Threatening, Hospitalization, Congenital Anomaly, Other)
  Sender: FDA-Public Use
  Company Number: WAES 1008USA03747

PATIENT
  Age: 82 Year
  Sex: Male

DRUGS (12)
  1. DIOVAN [Concomitant]
  2. TAMSU [Concomitant]
  3. VYTORIN [Suspect]
     Indication: ACUTE CORONARY SYNDROME
     Dosage: 10-40 MG/DAILY PO
     Route: 048
     Dates: start: 20090619
  4. MARCUMAR [Concomitant]
  5. HYDROCHLOROTHIAZIDE [Concomitant]
  6. PLACEBO [Suspect]
     Indication: ACUTE CORONARY SYNDROME
     Dosage: PO
     Route: 048
     Dates: start: 20090619
  7. NEBIVOLOL HCL [Concomitant]
  8. ASPIRIN [Concomitant]
  9. ENOXAPARIN SODIUM [Concomitant]
  10. FINASTERIDE [Concomitant]
  11. PLACEBO [Suspect]
     Indication: ACUTE CORONARY SYNDROME
     Dosage: PO
     Route: 048
     Dates: start: 20090619
  12. DIOVAN HCT [Concomitant]

REACTIONS (4)
  - ADENOMA BENIGN [None]
  - PROSTATIC SPECIFIC ANTIGEN INCREASED [None]
  - GASTROINTESTINAL HAEMORRHAGE [None]
  - COLONIC POLYP [None]
